FAERS Safety Report 19182874 (Version 5)
Quarter: 2021Q2

REPORT INFORMATION
  Report Type: Spontaneous
  Country: CA (occurrence: CA)
  Receive Date: 20210427
  Receipt Date: 20210625
  Transmission Date: 20210717
  Serious: Yes (Hospitalization, Other)
  Sender: FDA-Public Use
  Company Number: CA-CELLTRION INC.-2021CA000278

PATIENT

DRUGS (8)
  1. INFLECTRA [Suspect]
     Active Substance: INFLIXIMAB-DYYB
     Dosage: 900 MG AT 0, 2 AND 6 WEEKS (RE?INDUCTION), THEN EVERY 4 WEEKS
     Route: 042
     Dates: start: 20210612
  2. INFLECTRA [Suspect]
     Active Substance: INFLIXIMAB-DYYB
     Dosage: 600 MG, AT 0, 2 AND 6, WEEKS THEN EVERY 4 WEEKS
     Route: 042
     Dates: start: 20210301
  3. INFLECTRA [Suspect]
     Active Substance: INFLIXIMAB-DYYB
     Dosage: 600 MG, AT 0, 2 AND 6, WEEKS THEN EVERY 4 WEEKS
     Route: 042
     Dates: start: 20210315
  4. INFLECTRA [Suspect]
     Active Substance: INFLIXIMAB-DYYB
     Dosage: 900 MG AT 0, 2 AND 6 WEEKS (RE?INDUCTION), THEN EVERY 4 WEEKS
     Route: 042
     Dates: start: 20210501
  5. INFLECTRA [Suspect]
     Active Substance: INFLIXIMAB-DYYB
     Indication: CROHN^S DISEASE
     Dosage: 600 MG, UNSPECIFIED INDUCTION WITH MAINTENANCE EVERY 4 WEEKS
     Route: 042
  6. PREDNISONE. [Concomitant]
     Active Substance: PREDNISONE
     Dosage: UNK
     Dates: start: 2021
  7. INFLECTRA [Suspect]
     Active Substance: INFLIXIMAB-DYYB
     Dosage: 900 MG AT 0, 2 AND 6 WEEKS (RE?INDUCTION), THEN EVERY 4 WEEKS
     Route: 042
     Dates: start: 20210420
  8. INFLECTRA [Suspect]
     Active Substance: INFLIXIMAB-DYYB
     Dosage: 900 MG AT 0, 2 AND 6 WEEKS (RE?INDUCTION), THEN EVERY 4 WEEKS
     Route: 042
     Dates: start: 20210515

REACTIONS (5)
  - Condition aggravated [Not Recovered/Not Resolved]
  - Faecal calprotectin increased [Unknown]
  - Weight increased [Not Recovered/Not Resolved]
  - Aphthous ulcer [Unknown]
  - Off label use [Unknown]

NARRATIVE: CASE EVENT DATE: 2021
